FAERS Safety Report 4565584-1 (Version None)
Quarter: 2005Q1

REPORT INFORMATION
  Report Type: 
  Country: None (occurrence: None)
  Receive Date: 20050126
  Receipt Date: 20050110
  Transmission Date: 20050727
  Serious: Yes (Hospitalization, Other)
  Sender: FDA-Public Use
  Company Number: USA050187815

PATIENT
  Age: 89 Year
  Sex: Male
  Weight: 62 kg

DRUGS (11)
  1. FORTEO [Suspect]
     Indication: OSTEOPOROSIS
     Dosage: 20 UG/ 1 DAY
     Dates: start: 20041201
  2. TRAMADOL GENERICS (TRAMADOL HYDROCHLORIDE) [Concomitant]
  3. ASPIRIN [Concomitant]
  4. ALFUZOSIN [Concomitant]
  5. AVODART [Concomitant]
  6. CELEBREX [Concomitant]
  7. DIOVAN [Concomitant]
  8. FOSAMAX [Concomitant]
  9. PLAVIX [Concomitant]
  10. PEPCID [Concomitant]
  11. TUMS (CALCIUM CARBONATE) [Concomitant]

REACTIONS (3)
  - HERNIA [None]
  - PHARMACEUTICAL PRODUCT COMPLAINT [None]
  - PNEUMONIA [None]
